FAERS Safety Report 5319195-0 (Version None)
Quarter: 2007Q2

REPORT INFORMATION
  Report Type: 
  Country: None (occurrence: None)
  Receive Date: 20070508
  Receipt Date: 20070430
  Transmission Date: 20071010
  Serious: Yes (Hospitalization)
  Sender: FDA-Public Use
  Company Number: PHEH2007US04263

PATIENT
  Sex: Female

DRUGS (10)
  1. ZELNORM [Suspect]
     Indication: CONSTIPATION
     Dosage: 6 MG, BID
     Route: 048
     Dates: start: 20041001, end: 20070301
  2. STOOL SOFTENER [Concomitant]
  3. LAXATIVES [Concomitant]
  4. VITAMINS [Concomitant]
  5. XANAX [Concomitant]
  6. LYRICA [Concomitant]
  7. METHADONE HCL [Concomitant]
  8. METFORMIN HCL [Concomitant]
  9. AVANDIA [Concomitant]
  10. HYDROCODONE [Concomitant]

REACTIONS (5)
  - CARDIAC DISORDER [None]
  - CHEST PAIN [None]
  - DYSPNOEA [None]
  - HYPOAESTHESIA [None]
  - STRESS [None]
